FAERS Safety Report 6372926-3 (Version None)
Quarter: 2009Q3

REPORT INFORMATION
  Report Type: 
  Country: None (occurrence: None)
  Receive Date: 20090924
  Receipt Date: 20090220
  Transmission Date: 20100115
  Serious: Yes (Disabling)
  Sender: FDA-Public Use
  Company Number: US-ASTRAZENECA-2008UW26384

PATIENT
  Age: 16636 Day
  Sex: Male
  Weight: 86.2 kg

DRUGS (6)
  1. SEROQUEL [Suspect]
     Indication: BIPOLAR DISORDER
     Route: 048
     Dates: start: 20080620, end: 20080910
  2. SEROQUEL [Suspect]
     Dosage: 100
     Route: 048
  3. SEROQUEL [Suspect]
     Dosage: 200
     Route: 048
  4. SEROQUEL [Suspect]
     Dosage: 300
     Route: 048
  5. CYMBALTA [Concomitant]
     Indication: DEPRESSION
     Route: 048
     Dates: start: 20080828, end: 20080910
  6. KLONOPIN [Concomitant]
     Indication: ANXIETY
     Dates: start: 20080802

REACTIONS (1)
  - TARDIVE DYSKINESIA [None]
